FAERS Safety Report 20399442 (Version 2)
Quarter: 2022Q1

REPORT INFORMATION
  Report Type: Spontaneous
  Country: US (occurrence: US)
  Receive Date: 20220131
  Receipt Date: 20220201
  Transmission Date: 20220423
  Serious: No
  Sender: FDA-Public Use
  Company Number: US-ABBVIE-21K-163-3952153-00

PATIENT
  Sex: Female
  Weight: 47.216 kg

DRUGS (5)
  1. HUMIRA [Suspect]
     Active Substance: ADALIMUMAB
     Indication: Ankylosing spondylitis
     Route: 058
     Dates: start: 202002
  2. HUMIRA [Suspect]
     Active Substance: ADALIMUMAB
     Route: 058
  3. MOTRIN [Concomitant]
     Active Substance: IBUPROFEN
     Indication: Arthralgia
  4. VITAMIN D [Concomitant]
     Active Substance: VITAMIN D NOS
     Indication: Supplementation therapy
  5. HERBALS\TURMERIC [Concomitant]
     Active Substance: HERBALS\TURMERIC
     Indication: Supplementation therapy

REACTIONS (10)
  - Fatigue [Not Recovered/Not Resolved]
  - Asthenia [Not Recovered/Not Resolved]
  - Feeling abnormal [Not Recovered/Not Resolved]
  - Tinnitus [Unknown]
  - Eczema [Recovered/Resolved]
  - Headache [Not Recovered/Not Resolved]
  - Injection site reaction [Unknown]
  - Injection site swelling [Recovered/Resolved]
  - Device issue [Unknown]
  - Device issue [Unknown]

NARRATIVE: CASE EVENT DATE: 20210101
